FAERS Safety Report 11599230 (Version 1)
Quarter: 2015Q4

REPORT INFORMATION
  Report Type: Spontaneous
  Country: US (occurrence: US)
  Receive Date: 20151006
  Receipt Date: 20151006
  Transmission Date: 20160304
  Serious: Yes (Hospitalization, Other)
  Sender: FDA-Public Use
  Company Number: US-BAYER-2015-431445

PATIENT
  Age: 74 Year
  Sex: Female
  Weight: 77.98 kg

DRUGS (2)
  1. BAYER ASPIRIN QUICK RELEASE CRYSTALS [Suspect]
     Active Substance: ASPIRIN
     Dosage: 1 DF, PRN
     Route: 048
  2. BAYER LOW DOSE [Suspect]
     Active Substance: ASPIRIN
     Indication: PRODUCT USED FOR UNKNOWN INDICATION
     Dosage: 4 DF, ONCE
     Route: 048
     Dates: start: 20150901, end: 20150901

REACTIONS (6)
  - Coronary artery occlusion [None]
  - Intentional product use issue [None]
  - Blood pressure increased [Unknown]
  - Myocardial infarction [Recovered/Resolved]
  - Expired product administered [None]
  - Product use issue [Unknown]

NARRATIVE: CASE EVENT DATE: 20150901
